FAERS Safety Report 6779019-1 (Version None)
Quarter: 2010Q2

REPORT INFORMATION
  Report Type: 
  Country: None (occurrence: None)
  Receive Date: 20100618
  Receipt Date: 20100611
  Transmission Date: 20101027
  Serious: Yes (Other)
  Sender: FDA-Public Use
  Company Number: US-JNJFOC-20100604648

PATIENT
  Sex: Male

DRUGS (3)
  1. DURAGESIC-100 [Suspect]
     Indication: PAIN IN EXTREMITY
     Route: 062
  2. DARVOCET [Concomitant]
     Indication: PAIN
     Route: 048
  3. HYDROCODONE [Concomitant]
     Indication: PAIN
     Route: 048

REACTIONS (2)
  - HYPOTHYROIDISM [None]
  - PRODUCT QUALITY ISSUE [None]
